FAERS Safety Report 7492633-3 (Version None)
Quarter: 2011Q2

REPORT INFORMATION
  Report Type: 
  Country: None (occurrence: None)
  Receive Date: 20110519
  Receipt Date: 20110511
  Transmission Date: 20111010
  Serious: Yes (Hospitalization, Other)
  Sender: FDA-Public Use
  Company Number: BR-ELI_LILLY_AND_COMPANY-BR201105000293

PATIENT
  Sex: Female
  Weight: 55 kg

DRUGS (4)
  1. NEOZINE [Concomitant]
     Dosage: UNK, UNKNOWN
     Route: 065
  2. EVISTA [Suspect]
     Indication: OSTEOPOROSIS
     Dosage: UNK, UNKNOWN
     Route: 065
     Dates: start: 20050101
  3. RISPERIDONE [Concomitant]
     Dosage: UNK, UNKNOWN
     Route: 065
  4. CLONAZEPAM [Concomitant]
     Dosage: UNK, UNKNOWN
     Route: 065

REACTIONS (7)
  - DEMENTIA ALZHEIMER'S TYPE [None]
  - VOMITING [None]
  - TYPE 2 DIABETES MELLITUS [None]
  - OEDEMA PERIPHERAL [None]
  - BLOOD GLUCOSE INCREASED [None]
  - GLUCOSE TOLERANCE IMPAIRED [None]
  - FEELING ABNORMAL [None]
